FAERS Safety Report 20608229 (Version 9)
Quarter: 2023Q2

REPORT INFORMATION
  Report Type: Report from Study
  Country: KR (occurrence: KR)
  Receive Date: 20220317
  Receipt Date: 20230505
  Transmission Date: 20230722
  Serious: Yes (Hospitalization)
  Sender: FDA-Public Use
  Company Number: KR-NOVARTISPH-NVSC2022KR027304

PATIENT
  Age: 78 Year
  Sex: Male
  Weight: 59.9 kg

DRUGS (9)
  1. DABRAFENIB [Suspect]
     Active Substance: DABRAFENIB
     Indication: Thyroid cancer
     Dosage: UNK
     Route: 048
     Dates: start: 20220117, end: 20220203
  2. TRAMETINIB [Suspect]
     Active Substance: TRAMETINIB
     Indication: Thyroid cancer
     Dosage: UNK
     Route: 048
     Dates: start: 20220117, end: 20220204
  3. AMOSARTAN [Concomitant]
     Indication: Essential hypertension
     Dosage: UNK
     Route: 065
     Dates: start: 20150729
  4. FRAGMIN [Concomitant]
     Active Substance: DALTEPARIN SODIUM
     Indication: Thrombosis prophylaxis
     Dosage: UNK
     Route: 065
     Dates: start: 20210203, end: 20220210
  5. CICIBON [Concomitant]
     Indication: Mineral supplementation
     Dosage: UNK
     Route: 065
     Dates: start: 20210823
  6. ONEALFA [Concomitant]
     Active Substance: ALFACALCIDOL
     Indication: Vitamin supplementation
     Dosage: UNK
     Route: 065
     Dates: start: 20211115
  7. LEVOTHYROXINE SODIUM [Concomitant]
     Active Substance: LEVOTHYROXINE SODIUM
     Indication: Supplementation therapy
     Dosage: UNK
     Route: 065
     Dates: start: 20211115, end: 20220412
  8. AMLODIPINE [Concomitant]
     Active Substance: AMLODIPINE BESYLATE
     Indication: Essential hypertension
     Dosage: UNK
     Route: 065
     Dates: start: 20211221, end: 20220322
  9. OMED [Concomitant]
     Indication: Abdominal pain upper
     Dosage: UNK
     Route: 065
     Dates: start: 20210823

REACTIONS (1)
  - Duodenal ulcer [Recovering/Resolving]

NARRATIVE: CASE EVENT DATE: 20220204
